FAERS Safety Report 23530385 (Version 1)
Quarter: 2024Q1

REPORT INFORMATION
  Report Type: Other
  Country: CN (occurrence: None)
  Receive Date: 20240216
  Receipt Date: 20240216
  Transmission Date: 20240410
  Serious: Yes (Other)
  Sender: FDA-Public Use
  Company Number: CN-ROCHE-3508606

PATIENT
  Age: 58 Year
  Sex: Male

DRUGS (16)
  1. ADO-TRASTUZUMAB EMTANSINE [Suspect]
     Active Substance: ADO-TRASTUZUMAB EMTANSINE
     Indication: Lung adenocarcinoma
     Route: 065
     Dates: start: 20201015, end: 20210310
  2. BEVACIZUMAB [Suspect]
     Active Substance: BEVACIZUMAB
     Indication: Lung adenocarcinoma
     Dosage: SIX CYCLES OF FIRST-LINE CHEMOTHERAPY AND FOUR CYCLES OF MAINTENANCE THERAPY
     Route: 065
     Dates: start: 20190521, end: 20200501
  3. BEVACIZUMAB [Suspect]
     Active Substance: BEVACIZUMAB
     Route: 065
     Dates: start: 20200501, end: 20200724
  4. BEVACIZUMAB [Suspect]
     Active Substance: BEVACIZUMAB
     Route: 065
     Dates: start: 20200724, end: 20201015
  5. BEVACIZUMAB [Suspect]
     Active Substance: BEVACIZUMAB
     Route: 065
     Dates: start: 20211004, end: 20211206
  6. CISPLATIN [Suspect]
     Active Substance: CISPLATIN
     Indication: Lung adenocarcinoma
     Dosage: 1 CYCLE
     Route: 065
     Dates: start: 201905
  7. CISPLATIN [Suspect]
     Active Substance: CISPLATIN
     Dosage: SIX CYCLES OF FIRST-LINE CHEMOTHERAPY AND FOUR CYCLES OF MAINTENANCE THERAPY
     Route: 065
     Dates: start: 20190521, end: 20200501
  8. PEMETREXED [Suspect]
     Active Substance: PEMETREXED
     Indication: Lung adenocarcinoma
     Dosage: SIX CYCLES OF FIRST-LINE CHEMOTHERAPY AND FOUR CYCLES OF MAINTENANCE THERAPY
     Route: 065
     Dates: start: 20190521, end: 20200501
  9. PACLITAXEL [Suspect]
     Active Substance: PACLITAXEL
     Indication: Lung adenocarcinoma
     Route: 065
     Dates: start: 20200501, end: 20200724
  10. PACLITAXEL [Suspect]
     Active Substance: PACLITAXEL
     Route: 065
     Dates: start: 20211206, end: 20220515
  11. PEMBROLIZUMAB [Suspect]
     Active Substance: PEMBROLIZUMAB
     Indication: Lung adenocarcinoma
     Route: 065
     Dates: start: 20200501, end: 20200724
  12. AFATINIB [Suspect]
     Active Substance: AFATINIB
     Indication: Lung adenocarcinoma
     Route: 065
     Dates: start: 20200724, end: 20201015
  13. PYROTINIB [Suspect]
     Active Substance: PYROTINIB
     Indication: Lung adenocarcinoma
     Route: 065
     Dates: start: 20210310, end: 20211004
  14. POZIOTINIB [Suspect]
     Active Substance: POZIOTINIB
     Indication: Lung adenocarcinoma
     Route: 065
     Dates: start: 20211004, end: 20211206
  15. FAM-TRASTUZUMAB DERUXTECAN-NXKI [Concomitant]
     Active Substance: FAM-TRASTUZUMAB DERUXTECAN-NXKI
     Indication: Lung adenocarcinoma
     Route: 065
     Dates: start: 20220516, end: 20230330
  16. CATEQUENTINIB [Concomitant]
     Active Substance: CATEQUENTINIB
     Indication: Lung adenocarcinoma
     Route: 065

REACTIONS (2)
  - Metastases to central nervous system [Recovering/Resolving]
  - Disease progression [Unknown]

NARRATIVE: CASE EVENT DATE: 20200501
